FAERS Safety Report 8617122-1 (Version None)
Quarter: 2012Q3

REPORT INFORMATION
  Report Type: 
  Country: None (occurrence: None)
  Receive Date: 20120823
  Receipt Date: 20120820
  Transmission Date: 20120928
  Serious: No
  Sender: FDA-Public Use
  Company Number: US-PFIZER INC-2012204069

PATIENT
  Age: 54 Year
  Sex: Male

DRUGS (9)
  1. CITALOPRAM [Concomitant]
     Dosage: 40 MG, DAILY
  2. LYRICA [Suspect]
     Indication: FIBROMYALGIA
     Dosage: 100 MG, 3X/DAY
     Dates: end: 20120101
  3. IBUPROFEN [Concomitant]
     Dosage: 800 MG, 2X/DAY
  4. MIRTAZAPINE [Concomitant]
     Dosage: 30 MG, DAILY
  5. HYDROCODONE BITARTRATE + ACETAMINOPHEN [Concomitant]
     Dosage: 10/325 MG, 2X/DAY
  6. BUSPIRONE [Concomitant]
     Dosage: 10 MG, 2X/DAY
  7. ATENOLOL [Concomitant]
     Indication: BLOOD PRESSURE ABNORMAL
     Dosage: 50 MG, DAILY
  8. OMEPRAZOLE [Concomitant]
     Dosage: 20 MG, 2X/DAY
  9. GEMFIBROZIL [Concomitant]
     Dosage: 600 MG, 2X/DAY

REACTIONS (2)
  - BLOOD CHOLESTEROL INCREASED [None]
  - MALAISE [None]
